FAERS Safety Report 5291420-4 (Version None)
Quarter: 2007Q2

REPORT INFORMATION
  Report Type: 
  Country: None (occurrence: None)
  Receive Date: 20070402
  Receipt Date: 20070221
  Transmission Date: 20071010
  Serious: Yes (Hospitalization)
  Sender: FDA-Public Use
  Company Number: 237654

PATIENT
  Age: 57 Year
  Sex: Male

DRUGS (3)
  1. AVASTIN [Suspect]
     Indication: COLORECTAL CANCER METASTATIC
     Dosage: 555 MG, QD, INTRAVENOUS
     Route: 042
     Dates: start: 20061025
  2. CAPECITABINE(CAPECITABINE) [Suspect]
     Indication: COLORECTAL CANCER METASTATIC
     Dosage: 2800 MG, QD, INTRAVENOUS
     Route: 042
     Dates: start: 20061025
  3. OXALIPLTIN(OXALIPLATIN) [Suspect]
     Indication: COLORECTAL CANCER METASTATIC
     Dosage: 245 MG, QD, INTRAVENOUS
     Route: 042
     Dates: start: 20061025

REACTIONS (1)
  - ANASTOMOTIC ULCER [None]
